FAERS Safety Report 20554152 (Version 1)
Quarter: 2022Q1

REPORT INFORMATION
  Report Type: Spontaneous
  Country: US (occurrence: US)
  Receive Date: 20220304
  Receipt Date: 20220304
  Transmission Date: 20220423
  Serious: No
  Sender: FDA-Public Use
  Company Number: US-SA-SAC20220301000135

PATIENT

DRUGS (2)
  1. DUPIXENT [Suspect]
     Active Substance: DUPILUMAB
     Indication: Nasal polyps
     Dosage: UNK UNK, Q4W
  2. BENRALIZUMAB [Concomitant]
     Active Substance: BENRALIZUMAB
     Indication: Nasal polyps

REACTIONS (1)
  - Product use in unapproved indication [Unknown]
